FAERS Safety Report 7647837-3 (Version None)
Quarter: 2011Q3

REPORT INFORMATION
  Report Type: 
  Country: None (occurrence: None)
  Receive Date: 20110726
  Receipt Date: 20110711
  Transmission Date: 20111222
  Serious: Yes (Death, Hospitalization)
  Sender: FDA-Public Use
  Company Number: AUR-APL-2011-04281

PATIENT
  Age: 50 Year
  Sex: Female
  Weight: 70 kg

DRUGS (5)
  1. IBUPROFEN [Suspect]
     Indication: PRODUCT USED FOR UNKNOWN INDICATION
  2. TARKA (UDRAMIL) [Suspect]
     Indication: PRODUCT USED FOR UNKNOWN INDICATION
  3. LOSARTAN POTASSIUM [Suspect]
     Indication: PRODUCT USED FOR UNKNOWN INDICATION
  4. IBUPROFEN [Suspect]
     Indication: PRODUCT USED FOR UNKNOWN INDICATION
  5. LEXAURIN (BROMAZEPAM) [Suspect]
     Indication: PRODUCT USED FOR UNKNOWN INDICATION

REACTIONS (7)
  - POISONING [None]
  - ALANINE AMINOTRANSFERASE INCREASED [None]
  - CARDIAC ARREST [None]
  - HYPOTENSION [None]
  - ASPARTATE AMINOTRANSFERASE INCREASED [None]
  - COMPLETED SUICIDE [None]
  - HYPERCALCAEMIA [None]
